FAERS Safety Report 5651091-1 (Version None)
Quarter: 2008Q1

REPORT INFORMATION
  Report Type: 
  Country: None (occurrence: None)
  Receive Date: 20080305
  Receipt Date: 20080226
  Transmission Date: 20080703
  Serious: Yes (Hospitalization)
  Sender: FDA-Public Use
  Company Number: US-ELI_LILLY_AND_COMPANY-US200801003019

PATIENT
  Sex: Female

DRUGS (16)
  1. FORTEO [Suspect]
     Indication: OSTEOPOROSIS
     Dosage: 20 UG, DAILY (1/D)
     Dates: start: 20071231
  2. COUMADIN [Concomitant]
     Dosage: 5 MG, DAILY (1/D)
  3. ASPIRIN [Concomitant]
     Dosage: 81 MG, DAILY (1/D)
  4. DIOVAN [Concomitant]
     Dosage: 160 MG, DAILY (1/D)
  5. VYTORIN [Concomitant]
     Dosage: UNK, DAILY (1/D)
  6. BIOTENE [Concomitant]
     Dosage: 1000 UG, DAILY (1/D)
  7. CALCIUM [Concomitant]
  8. CALTRATE + D [Concomitant]
     Dosage: UNK, 2/D
  9. CARTEOL [Concomitant]
  10. ISOSORBIDE MONONITRATE [Concomitant]
     Dosage: 15 MG, DAILY (1/D)
  11. VITAMIN D [Concomitant]
     Dosage: 400 U, DAILY (1/D)
  12. COREG [Concomitant]
     Dosage: 6.5 MG, 2/D
  13. FUROSEMIDE [Concomitant]
     Dosage: 20 MG, 2/D
  14. OMACOR [Concomitant]
     Dosage: 1 G, 2/D
  15. PARAFON FORTE DSC [Concomitant]
     Dosage: 500 MG, 4/D
  16. TRAMADOL HCL [Concomitant]
     Dosage: 50 MG, AS NEEDED

REACTIONS (3)
  - ATRIAL FIBRILLATION [None]
  - INJECTION SITE PRURITUS [None]
  - INJECTION SITE REACTION [None]
